FAERS Safety Report 11177940 (Version 1)
Quarter: 2015Q2

REPORT INFORMATION
  Report Type: Spontaneous
  Country: US (occurrence: None)
  Receive Date: 20150515
  Receipt Date: 20150515
  Transmission Date: 20150821
  Serious: Yes (Other)
  Sender: FDA-Public Use
  Company Number: 2014019628

PATIENT

DRUGS (4)
  1. HUMIRA (ADALIMUNAB) [Concomitant]
  2. ENBREL [Concomitant]
     Active Substance: ETANERCEPT
  3. CIMZIA [Suspect]
     Active Substance: CERTOLIZUMAB PEGOL
     Indication: PRODUCT USED FOR UNKNOWN INDICATION
  4. REMICADE [Concomitant]
     Active Substance: INFLIXIMAB

REACTIONS (1)
  - Fungal infection [None]
